FAERS Safety Report 11775480 (Version 2)
Quarter: 2019Q2

REPORT INFORMATION
  Report Type: Spontaneous
  Country: US (occurrence: US)
  Receive Date: 20151125
  Receipt Date: 20190614
  Transmission Date: 20190711
  Serious: No
  Sender: FDA-Public Use
  Company Number: US-JNJFOC-20151104390

PATIENT
  Age: 60 Year
  Sex: Male

DRUGS (5)
  1. RISPERDAL [Suspect]
     Active Substance: RISPERIDONE
     Indication: ANXIETY
     Dosage: VARYING DOSE OF 0.5 MG TO 2.0 MG
     Route: 048
     Dates: start: 2009, end: 2010
  2. RISPERDAL [Suspect]
     Active Substance: RISPERIDONE
     Indication: HYPERTENSION
     Dosage: VARYING DOSE OF 0.5 MG TO 2.0 MG
     Route: 048
     Dates: start: 2009, end: 2010
  3. RISPERDAL [Suspect]
     Active Substance: RISPERIDONE
     Indication: PANIC DISORDER
     Dosage: VARYING DOSE OF 0.5 MG TO 2.0 MG
     Route: 048
     Dates: start: 2009, end: 2010
  4. RISPERDAL [Suspect]
     Active Substance: RISPERIDONE
     Indication: BIPOLAR DISORDER
     Dosage: VARYING DOSE OF 0.5 MG TO 2.0 MG
     Route: 048
     Dates: start: 2009, end: 2010
  5. RISPERDAL [Suspect]
     Active Substance: RISPERIDONE
     Indication: DEPRESSION
     Dosage: VARYING DOSE OF 0.5 MG TO 2.0 MG
     Route: 048
     Dates: start: 2009, end: 2010

REACTIONS (6)
  - Abdominal discomfort [Unknown]
  - Hypersomnia [Unknown]
  - Abnormal weight gain [Unknown]
  - Treatment noncompliance [Unknown]
  - Drug ineffective [Unknown]
  - Gynaecomastia [Unknown]

NARRATIVE: CASE EVENT DATE: 20090729
